FAERS Safety Report 6131381-9 (Version None)
Quarter: 2009Q1

REPORT INFORMATION
  Report Type: 
  Country: None (occurrence: None)
  Receive Date: 20090325
  Receipt Date: 20080617
  Transmission Date: 20090719
  Serious: Yes (Other)
  Sender: FDA-Public Use
  Company Number: US-BRISTOL-MYERS SQUIBB COMPANY-14173405

PATIENT
  Age: 70 Year
  Sex: Female

DRUGS (4)
  1. ERBITUX [Suspect]
     Indication: RECTAL CANCER
     Route: 042
     Dates: start: 20080430, end: 20080430
  2. ZANTAC [Concomitant]
     Dosage: SOLUTION FOR SUSPENSION.
     Route: 042
  3. BENADRYL [Concomitant]
     Dosage: SOLUTION FOR SUSPENSION.
     Route: 042
  4. DEXAMETHASONE TAB [Concomitant]
     Route: 042

REACTIONS (4)
  - ANXIETY [None]
  - DYSPNOEA [None]
  - ERYTHEMA [None]
  - SWELLING FACE [None]
